FAERS Safety Report 7324192-X (Version None)
Quarter: 2011Q1

REPORT INFORMATION
  Report Type: 
  Country: None (occurrence: None)
  Receive Date: 20110301
  Receipt Date: 20110223
  Transmission Date: 20110831
  Serious: Yes (Hospitalization)
  Sender: FDA-Public Use
  Company Number: US-B.I. PHARMACEUTICALS,INC./RIDGEFIELD-2011-BP-04774BP

PATIENT
  Age: 54 Year
  Sex: Male

DRUGS (6)
  1. ALBUTEROL [Concomitant]
  2. SINGULAIR [Concomitant]
  3. INSULIN [Concomitant]
  4. FLOVENT [Concomitant]
  5. DULCOLAX [Suspect]
     Indication: CONSTIPATION
     Dosage: 5 MG
     Route: 048
     Dates: start: 20110201, end: 20110201
  6. UNSPECIFIED MEDICATION FOR HYPERTENSION [Concomitant]
     Indication: HYPERTENSION

REACTIONS (3)
  - BLOOD PRESSURE INCREASED [None]
  - HAEMATOCHEZIA [None]
  - FEELING ABNORMAL [None]
